APPROVED DRUG PRODUCT: LISINOPRIL AND HYDROCHLOROTHIAZIDE
Active Ingredient: HYDROCHLOROTHIAZIDE; LISINOPRIL
Strength: 25MG;20MG
Dosage Form/Route: TABLET;ORAL
Application: A076674 | Product #003 | TE Code: AB
Applicant: COREPHARMA LLC
Approved: Oct 5, 2004 | RLD: No | RS: No | Type: RX